FAERS Safety Report 7026715-7 (Version None)
Quarter: 2010Q4

REPORT INFORMATION
  Report Type: 
  Country: None (occurrence: None)
  Receive Date: 20101004
  Receipt Date: 20100922
  Transmission Date: 20110411
  Serious: Yes (Death)
  Sender: FDA-Public Use
  Company Number: GB-ALEXION-A201001198

PATIENT

DRUGS (17)
  1. SOLIRIS [Suspect]
     Indication: PAROXYSMAL NOCTURNAL HAEMOGLOBINURIA
     Dosage: UNK
     Route: 042
     Dates: start: 20100907
  2. ALENDRONIC ACID [Concomitant]
     Dosage: 70 MG, QW
  3. CALCIUM CARBONATE W/COLECALCIFEROL [Concomitant]
     Dosage: 1
  4. ACETAMINOPHEN AND CODEINE PHOSPHATE [Concomitant]
     Dosage: UNK
  5. FOLIC ACID [Concomitant]
     Dosage: 5 MG, QD
  6. GLICLAZIDE [Concomitant]
     Dosage: 160 MG, BID
  7. METFORMIN [Concomitant]
     Dosage: 1 G, BID
  8. NOVOMIX                            /01475801/ [Concomitant]
  9. LANSOPRAZOLE [Concomitant]
     Dosage: 30 MG, QD
  10. HYDROXYZINE [Concomitant]
     Dosage: 10 MG TID AND 25 MG QHS
  11. LACTULOSE [Concomitant]
     Dosage: UNK
  12. MOVICOL                            /01053601/ [Concomitant]
     Dosage: UNK
  13. PENICILLIN V                       /00001801/ [Concomitant]
     Dosage: 500 MG, BID
  14. PREDNISOLONE [Concomitant]
     Dosage: 20 MG, QD
  15. DIAZEPAM [Concomitant]
     Dosage: 2 MG, QHS
  16. MYCOPHENOLATE MOFETIL [Concomitant]
     Dosage: 1 G, BID
  17. KENALOG [Concomitant]
     Dosage: 80 MG, Q8WKS

REACTIONS (2)
  - MULTI-ORGAN FAILURE [None]
  - SEPSIS [None]
